FAERS Safety Report 9518711 (Version 4)
Quarter: 2014Q1

REPORT INFORMATION
  Report Type: Report from Study
  Country: CA (occurrence: CA)
  Receive Date: 20130912
  Receipt Date: 20140206
  Transmission Date: 20141002
  Serious: Yes (Hospitalization, Other)
  Sender: FDA-Public Use
  Company Number: CA-JNJFOC-20130903272

PATIENT
  Age: 62 Year
  Sex: Female
  Weight: 101.9 kg

DRUGS (8)
  1. REMICADE [Suspect]
     Indication: CROHN^S DISEASE
     Route: 042
  2. REMICADE [Suspect]
     Indication: CROHN^S DISEASE
     Route: 042
     Dates: start: 20110831
  3. REMICADE [Suspect]
     Indication: CROHN^S DISEASE
     Route: 042
     Dates: start: 2010
  4. METHOTREXATE [Concomitant]
     Route: 065
  5. HYDROXYCHLOROQUIN [Concomitant]
     Route: 065
  6. CELEBREX [Concomitant]
     Route: 065
  7. AMITRIPTYLINE [Concomitant]
     Route: 065
  8. FOLIC ACID [Concomitant]
     Route: 065

REACTIONS (3)
  - Hysterectomy [Unknown]
  - Gallbladder operation [Unknown]
  - Investigation [Unknown]
